FAERS Safety Report 19055070 (Version 2)
Quarter: 2021Q2

REPORT INFORMATION
  Report Type: Spontaneous
  Country: US (occurrence: US)
  Receive Date: 20210325
  Receipt Date: 20210602
  Transmission Date: 20210717
  Serious: Yes (Hospitalization, Other)
  Sender: FDA-Public Use
  Company Number: US-B.I. PHARMACEUTICALS,INC./RIDGEFIELD-2021-BI-091279

PATIENT
  Age: 73 Year
  Sex: Female

DRUGS (1)
  1. PRADAXA [Suspect]
     Active Substance: DABIGATRAN ETEXILATE MESYLATE
     Indication: POLLAKIURIA
     Dosage: 150 MG BID
     Route: 065
     Dates: start: 2019

REACTIONS (6)
  - Off label use [Not Recovered/Not Resolved]
  - Memory impairment [Not Recovered/Not Resolved]
  - Pleural effusion [Recovered/Resolved]
  - Dyspnoea [Not Recovered/Not Resolved]
  - Stitch abscess [Recovered/Resolved]
  - Lung neoplasm malignant [Unknown]

NARRATIVE: CASE EVENT DATE: 2019
